FAERS Safety Report 23963719 (Version 2)
Quarter: 2025Q3

REPORT INFORMATION
  Report Type: Spontaneous
  Country: CN (occurrence: CN)
  Receive Date: 20240611
  Receipt Date: 20250818
  Transmission Date: 20251021
  Serious: Yes (Other)
  Sender: BAUSCH AND LOMB
  Company Number: CN-BAUSCHBL-2024BNL028330

PATIENT
  Sex: Female

DRUGS (5)
  1. BROMFENAC [Suspect]
     Active Substance: BROMFENAC
     Indication: Postoperative care
     Route: 065
  2. BROMFENAC [Suspect]
     Active Substance: BROMFENAC
     Route: 065
  3. ALBUMIN BOVINE [Suspect]
     Active Substance: ALBUMIN BOVINE
     Indication: Product used for unknown indication
     Route: 065
  4. TOBRAMYCIN AND DEXAMETHASONE [Concomitant]
     Active Substance: DEXAMETHASONE\TOBRAMYCIN
     Indication: Product used for unknown indication
     Route: 065
  5. TOBRAMYCIN AND DEXAMETHASONE [Concomitant]
     Active Substance: DEXAMETHASONE\TOBRAMYCIN
     Route: 065

REACTIONS (1)
  - Toxic epidermal necrolysis [Recovered/Resolved]
